FAERS Safety Report 7202842-6 (Version None)
Quarter: 2010Q4

REPORT INFORMATION
  Report Type: 
  Country: None (occurrence: None)
  Receive Date: 20101229
  Receipt Date: 20101224
  Transmission Date: 20110411
  Serious: Yes (Hospitalization)
  Sender: FDA-Public Use
  Company Number: JP-PFIZER INC-2010178791

PATIENT
  Age: 32 Year
  Sex: Male

DRUGS (3)
  1. AZITHROMYCIN [Suspect]
     Indication: OPPORTUNISTIC INFECTION PROPHYLAXIS
     Dosage: 1200 MG, WEEKLY
     Route: 048
     Dates: start: 20061002, end: 20070723
  2. GANCICLOVIR [Suspect]
     Indication: CYTOMEGALOVIRUS INFECTION
     Dosage: 350 MG, 2X/DAY
     Route: 041
     Dates: start: 20060929, end: 20061018
  3. BENAMBAX [Concomitant]
     Indication: PROPHYLAXIS
     Dosage: 100 MG, MONTHLY
     Route: 011
     Dates: start: 20060925, end: 20071001

REACTIONS (1)
  - BONE MARROW DISORDER [None]
